FAERS Safety Report 12806361 (Version 1)
Quarter: 2016Q4

REPORT INFORMATION
  Report Type: Spontaneous
  Country: US (occurrence: US)
  Receive Date: 20161004
  Receipt Date: 20161004
  Transmission Date: 20170207
  Serious: Yes (Hospitalization, Other)
  Sender: FDA-Public Use
  Company Number: US-DRREDDYS-USA/USA/16/0083629

PATIENT
  Sex: Male

DRUGS (1)
  1. AMOXICILLIN. [Suspect]
     Active Substance: AMOXICILLIN
     Indication: NASOPHARYNGITIS
     Route: 065

REACTIONS (13)
  - Stomatitis [Unknown]
  - Dry throat [Unknown]
  - Anxiety [Unknown]
  - Drug hypersensitivity [Unknown]
  - Cardiac failure [Unknown]
  - Dyspnoea [Unknown]
  - Swollen tongue [Unknown]
  - Chest pain [Unknown]
  - Unevaluable event [Unknown]
  - Cerebrovascular accident [Unknown]
  - Pruritus generalised [Unknown]
  - Tongue blistering [Unknown]
  - Thrombosis [Unknown]
